FAERS Safety Report 5200971-X (Version None)
Quarter: 2007Q1

REPORT INFORMATION
  Report Type: 
  Country: None (occurrence: None)
  Receive Date: 20070103
  Receipt Date: 20061221
  Transmission Date: 20070707
  Serious: Yes (Congenital Anomaly, Other)
  Sender: FDA-Public Use
  Company Number: 06-001544

PATIENT

DRUGS (1)
  1. TACLONEX [Suspect]
     Dosage: TRANSPLACENTAL
     Route: 064
     Dates: start: 20060211, end: 20060509

REACTIONS (3)
  - ABORTION INDUCED [None]
  - ANENCEPHALY [None]
  - DRUG EXPOSURE DURING PREGNANCY [None]
